FAERS Safety Report 5103862-8 (Version None)
Quarter: 2006Q3

REPORT INFORMATION
  Report Type: 
  Country: None (occurrence: None)
  Receive Date: 20060913
  Receipt Date: 20050707
  Transmission Date: 20061208
  Serious: Yes (Other)
  Sender: FDA-Public Use
  Company Number: CH-GLAXOSMITHKLINE-B0387616A

PATIENT
  Age: 44 Year
  Sex: Female

DRUGS (8)
  1. DEROXAT [Suspect]
     Indication: BIPOLAR DISORDER
     Route: 048
     Dates: end: 20050429
  2. DEPAKENE [Suspect]
     Indication: BIPOLAR DISORDER
     Dosage: 250MG PER DAY
     Route: 065
     Dates: end: 20050429
  3. RIVOTRIL [Suspect]
     Dosage: .5MG AS REQUIRED
     Route: 065
     Dates: end: 20050429
  4. ZYPREXA [Suspect]
     Dosage: 2.5MG AS REQUIRED
  5. SERESTA [Suspect]
     Dosage: 15MG THREE TIMES PER DAY
  6. DAFALGAN [Concomitant]
     Dosage: 500MG SIX TIMES PER DAY
  7. FOLIC ACID [Concomitant]
     Dosage: 5MG PER DAY
  8. EUTHYROX [Concomitant]
     Indication: HYPOTHYROIDISM
     Dosage: 150UG PER DAY

REACTIONS (4)
  - CAESAREAN SECTION [None]
  - DRUG EXPOSURE DURING PREGNANCY [None]
  - NORMAL DELIVERY [None]
  - PREGNANCY [None]
